FAERS Safety Report 9716119 (Version 2)
Quarter: 2014Q1

REPORT INFORMATION
  Report Type: Report from Study
  Country: US (occurrence: US)
  Receive Date: 20131127
  Receipt Date: 20140203
  Transmission Date: 20141002
  Serious: Yes (Other)
  Sender: FDA-Public Use
  Company Number: US-BAYER-2013-144403

PATIENT
  Age: 55 Year
  Sex: Male

DRUGS (4)
  1. NEXAVAR [Suspect]
     Indication: HEPATIC CANCER
     Route: 048
  2. NEXAVAR [Suspect]
     Indication: HEPATIC CANCER
     Dosage: 800 MG, QD
     Route: 048
     Dates: end: 201311
  3. NEXAVAR [Suspect]
     Indication: HEPATIC CANCER
     Dosage: 600 MG, QD
     Route: 048
     Dates: start: 201311
  4. NEXAVAR [Suspect]
     Indication: HEPATIC CANCER
     Dosage: DAILY DOSE 400 MG
     Route: 048

REACTIONS (3)
  - Confusional state [Recovered/Resolved]
  - Rash [None]
  - Fatigue [None]
